FAERS Safety Report 8617358-X (Version None)
Quarter: 2012Q3

REPORT INFORMATION
  Report Type: 
  Country: None (occurrence: None)
  Receive Date: 20120823
  Receipt Date: 20120815
  Transmission Date: 20120928
  Serious: Yes (Hospitalization, Other)
  Sender: FDA-Public Use
  Company Number: US-009507513-1108USA00640

PATIENT

DRUGS (4)
  1. FOSAMAX [Suspect]
     Dosage: 70 MG, QW
     Route: 048
  2. METICORTEN [Concomitant]
     Dosage: 3 MG, QD
     Dates: start: 19650101
  3. FOSAMAX [Suspect]
     Indication: OSTEOPOROSIS
     Dosage: 70 MG, QW
     Route: 048
     Dates: end: 20100101
  4. PREDNISONE TAB [Concomitant]
     Indication: SYSTEMIC LUPUS ERYTHEMATOSUS

REACTIONS (37)
  - METASTASES TO THORAX [None]
  - FEMUR FRACTURE [None]
  - ADVERSE EVENT [None]
  - VENOUS THROMBOSIS LIMB [None]
  - GASTROINTESTINAL HAEMORRHAGE [None]
  - CEREBRAL ATROPHY [None]
  - THROMBOPHLEBITIS [None]
  - DEEP VEIN THROMBOSIS [None]
  - STRESS FRACTURE [None]
  - BLOOD CHOLESTEROL INCREASED [None]
  - OVARIAN CYST [None]
  - LIMB DISCOMFORT [None]
  - FALL [None]
  - STEROID THERAPY [None]
  - SINUSITIS [None]
  - HIATUS HERNIA [None]
  - ESSENTIAL HYPERTENSION [None]
  - OPEN REDUCTION OF FRACTURE [None]
  - SPINAL COLUMN STENOSIS [None]
  - EARLY SATIETY [None]
  - OSTEOPENIA [None]
  - INSOMNIA [None]
  - OSTEOARTHRITIS [None]
  - LIPIDS INCREASED [None]
  - KYPHOSIS [None]
  - SPINAL OSTEOARTHRITIS [None]
  - ANXIETY DISORDER [None]
  - BREAST CANCER [None]
  - MASTECTOMY [None]
  - BLOOD CHOLESTEROL DECREASED [None]
  - LACUNAR INFARCTION [None]
  - HAEMORRHAGIC ANAEMIA [None]
  - BACK PAIN [None]
  - ARTHRITIS [None]
  - CATARACT [None]
  - BREAST DISORDER [None]
  - BONE FRAGMENTATION [None]
